FAERS Safety Report 7655710-X (Version None)
Quarter: 2011Q3

REPORT INFORMATION
  Report Type: 
  Country: None (occurrence: None)
  Receive Date: 20110804
  Receipt Date: 20110727
  Transmission Date: 20111222
  Serious: Yes (Hospitalization, Other)
  Sender: FDA-Public Use
  Company Number: US-BAYER-201033184NA

PATIENT
  Age: 40 Year
  Sex: Female
  Weight: 118 kg

DRUGS (6)
  1. ZYRTEC [Concomitant]
     Dosage: 10 MG, HS
     Route: 048
  2. ALBUTEROL SULFATE AUTOHALER [Concomitant]
     Indication: ASTHMA
     Dosage: UNK
     Dates: start: 19930101
  3. NASONEX [Concomitant]
     Dosage: UNK UNK, QD
     Route: 045
  4. YAZ [Suspect]
     Indication: PRODUCT USED FOR UNKNOWN INDICATION
     Dosage: UNK UNK, UNK
     Route: 065
     Dates: start: 20070101, end: 20090101
  5. SINGULAIR [Concomitant]
     Dosage: 10 MG, QD
     Route: 048
  6. ACETAMINOPHEN [Concomitant]
     Indication: HEADACHE
     Dosage: UNK UNK, PRN
     Dates: start: 20100501

REACTIONS (1)
  - PORTAL VEIN THROMBOSIS [None]
